FAERS Safety Report 5528708-5 (Version None)
Quarter: 2007Q4

REPORT INFORMATION
  Report Type: 
  Country: None (occurrence: None)
  Receive Date: 20071129
  Receipt Date: 20071114
  Transmission Date: 20080405
  Serious: Yes (Hospitalization)
  Sender: FDA-Public Use
  Company Number: JP-JNJFOC-20071103048

PATIENT
  Age: 6 Year
  Sex: Male

DRUGS (5)
  1. RISPERDAL [Suspect]
     Indication: IMPULSIVE BEHAVIOUR
  2. RISPERDAL [Suspect]
     Indication: HYPERKINESIA
  3. ZONISAMIDE [Concomitant]
     Route: 048
  4. VALPROATE SODIUM [Concomitant]
     Route: 048
  5. CLONAZEPAM [Concomitant]
     Route: 048

REACTIONS (7)
  - ACCIDENTAL OVERDOSE [None]
  - CONVULSION [None]
  - DYSKINESIA [None]
  - GAIT DISTURBANCE [None]
  - MEDICATION ERROR [None]
  - SOMNOLENCE [None]
  - TREMOR [None]
